FAERS Safety Report 9492338 (Version 1)
Quarter: 2013Q3

REPORT INFORMATION
  Report Type: Spontaneous
  Country: SE (occurrence: SE)
  Receive Date: 20130830
  Receipt Date: 20130830
  Transmission Date: 20140515
  Serious: Yes (Other)
  Sender: FDA-Public Use
  Company Number: SE-WATSON-2013-15347

PATIENT
  Sex: Female

DRUGS (11)
  1. DIAZEPAM (UNKNOWN) [Suspect]
     Indication: PRODUCT USED FOR UNKNOWN INDICATION
     Dosage: 10 MG MILLIGRAM(S) DOSAGE(S)=3 INTERVAL= 1 DAY(S)
     Route: 048
  2. DIAZEPAM (UNKNOWN) [Suspect]
     Dosage: 10 MG MILLIGRAM(S) DOSAGE(S)=3 INTERVAL= 1 DAY(S)
     Route: 054
     Dates: start: 20110603
  3. DIAZEPAM (UNKNOWN) [Suspect]
     Dosage: UNK
     Route: 054
  4. CITODON [Concomitant]
     Indication: PRODUCT USED FOR UNKNOWN INDICATION
     Dosage: 500MG / 30MG, 4-6 TABLETS DAILY
     Route: 065
  5. IMIGRANE [Concomitant]
     Indication: PRODUCT USED FOR UNKNOWN INDICATION
     Dosage: 1 DF DOSAGE FORM INTERVAL= NAN AS NECESSARY(S)
     Route: 065
  6. MORPHINE [Concomitant]
     Indication: PAIN
     Dosage: 10 MG 2-3 TIMES DAILY FOR THE PAIN INSTEAD OF PAIN MEDICATION
     Route: 065
  7. EFEXOR [Concomitant]
     Indication: DEPRESSION
     Dosage: 1/2 TABLET OF THE LOWEST DOSE SINCE FALL 2012 FOR INDICATION DEEP DEPRESSION
     Route: 065
     Dates: start: 2012
  8. CIPRALEX [Concomitant]
     Indication: PRODUCT USED FOR UNKNOWN INDICATION
     Dosage: 20 MG MILLIGRAM(S) DOSAGE(S)=1 INTERVAL= 1 DAY(S)
     Route: 065
  9. BEHEPAN [Concomitant]
     Indication: VITAMIN B12 DEFICIENCY
     Dosage: INJECTION ONCE A WEEK BECAUSE OF LOW VITAMIN B12 IN SPINE
     Route: 065
  10. CALCIUM OXIDE [Concomitant]
     Indication: PRODUCT USED FOR UNKNOWN INDICATION
     Dosage: UNK, BID
     Route: 065
  11. OMEGA 3 [Concomitant]
     Indication: PRODUCT USED FOR UNKNOWN INDICATION
     Dosage: UNK, BID
     Route: 065

REACTIONS (10)
  - Anxiety [Unknown]
  - Intestinal haemorrhage [Unknown]
  - Faeces discoloured [Unknown]
  - Sciatica [Unknown]
  - Pain [Unknown]
  - Muscle spasms [Unknown]
  - Mobility decreased [Unknown]
  - Alopecia [Unknown]
  - Weight decreased [Unknown]
  - Drug ineffective [Unknown]
